FAERS Safety Report 23452959 (Version 1)
Quarter: 2024Q1

REPORT INFORMATION
  Report Type: Spontaneous
  Country: US (occurrence: US)
  Receive Date: 20240129
  Receipt Date: 20240129
  Transmission Date: 20240410
  Serious: No
  Sender: FDA-Public Use
  Company Number: US-PFIZER INC-202400026242

PATIENT
  Age: 66 Year
  Sex: Female

DRUGS (15)
  1. XELJANZ XR [Suspect]
     Active Substance: TOFACITINIB CITRATE
     Dosage: 11 MG (1 TABLET), DAILY
  2. RESTASIS [Concomitant]
     Active Substance: CYCLOSPORINE
  3. CELEBREX [Concomitant]
     Active Substance: CELECOXIB
  4. PANTOPRAZOLE [Concomitant]
     Active Substance: PANTOPRAZOLE
  5. MONTELUKAST [Concomitant]
     Active Substance: MONTELUKAST SODIUM
  6. GABAPENTIN [Concomitant]
     Active Substance: GABAPENTIN
  7. ZINC [Concomitant]
     Active Substance: PYRITHIONE ZINC\ZINC\ZINC CHLORIDE
  8. IRON [Concomitant]
     Active Substance: IRON
  9. CITRACAL-D3 MAXIMUM PLUS [Concomitant]
  10. OCUVITE [ASCORBIC ACID;RETINOL;TOCOPHEROL] [Concomitant]
  11. RISEDRONATE SODIUM [Concomitant]
     Active Substance: RISEDRONATE SODIUM
  12. MELATONIN [Concomitant]
     Active Substance: MELATONIN
  13. LYSINE [Concomitant]
     Active Substance: LYSINE
  14. LEUCOVORIN [Concomitant]
     Active Substance: LEUCOVORIN\LEUCOVORIN CALCIUM
  15. OTREXUP [Concomitant]
     Active Substance: METHOTREXATE

REACTIONS (1)
  - Nasopharyngitis [Not Recovered/Not Resolved]
